FAERS Safety Report 23179885 (Version 3)
Quarter: 2024Q1

REPORT INFORMATION
  Report Type: Spontaneous
  Country: JP (occurrence: JP)
  Receive Date: 20231114
  Receipt Date: 20240308
  Transmission Date: 20240409
  Serious: Yes (Hospitalization, Other)
  Sender: FDA-Public Use
  Company Number: JP-MSD-M2023-20193

PATIENT
  Age: 7 Decade
  Sex: Female

DRUGS (3)
  1. KEYTRUDA [Suspect]
     Active Substance: PEMBROLIZUMAB
     Indication: Triple negative breast cancer
     Dosage: 200 MILLIGRAM, Q3W
     Route: 041
     Dates: start: 202105
  2. CARBOPLATIN [Concomitant]
     Active Substance: CARBOPLATIN
     Indication: Triple negative breast cancer
     Dosage: UNK
     Route: 065
     Dates: start: 202105
  3. GEMCITABINE HYDROCHLORIDE [Concomitant]
     Active Substance: GEMCITABINE HYDROCHLORIDE
     Indication: Triple negative breast cancer
     Dosage: UNK
     Route: 065
     Dates: start: 202105

REACTIONS (4)
  - Immune-mediated hyperthyroidism [Recovering/Resolving]
  - Secondary adrenocortical insufficiency [Recovering/Resolving]
  - Blood creatine phosphokinase increased [Recovering/Resolving]
  - Eyelid ptosis [Recovering/Resolving]

NARRATIVE: CASE EVENT DATE: 20221201
